FAERS Safety Report 5367626-2 (Version None)
Quarter: 2007Q2

REPORT INFORMATION
  Report Type: 
  Country: None (occurrence: None)
  Receive Date: 20070622
  Receipt Date: 20070129
  Transmission Date: 20071010
  Serious: No
  Sender: FDA-Public Use
  Company Number: US-ASTRAZENECA-2007UW01838

PATIENT
  Sex: Female

DRUGS (1)
  1. PULMICORT [Suspect]
     Dosage: 4 PUFFS, 200 MG, TWICE DAILY
     Route: 055

REACTIONS (2)
  - COUGH [None]
  - DYSPNOEA [None]
